FAERS Safety Report 6090902-5 (Version None)
Quarter: 2009Q1

REPORT INFORMATION
  Report Type: 
  Country: None (occurrence: None)
  Receive Date: 20090220
  Receipt Date: 20090216
  Transmission Date: 20090719
  Serious: Yes (Death, Hospitalization, Other)
  Sender: FDA-Public Use
  Company Number: 6049012

PATIENT
  Sex: Female

DRUGS (5)
  1. BISOPROLOL-RATIOPHARM (TABLET) (BISOPROLOL FUMARATE) [Suspect]
     Indication: DRUG USE FOR UNKNOWN INDICATION
     Dosage: 5 MG (5 MG, 1 IN 1 D); ORAL
     Route: 048
     Dates: start: 20080611
  2. ALLO-CT (TABLET) (ALLOPURINOL) [Suspect]
     Indication: GOUT
     Dosage: 300 MG (300 MG, 1 IN 1 D) ORAL
     Route: 048
     Dates: start: 20080707, end: 20080707
  3. DICLO-CT (TABLET) (DICLOFENAC) [Suspect]
     Indication: PAIN
     Dosage: 50 MG (50 MG, 1 IN 1 ONCE) ORAL
     Route: 048
     Dates: start: 20080707, end: 20080707
  4. SIMVASTATIN HEUMANN (TABLET) (SIMVASTATIN) [Suspect]
     Indication: HYPERCHOLESTEROLAEMIA
     Dosage: 10 MG; 20 MG; ORAL
     Route: 048
     Dates: start: 20080418, end: 20080518
  5. SIMVASTATIN HEUMANN (TABLET) (SIMVASTATIN) [Suspect]
     Indication: HYPERCHOLESTEROLAEMIA
     Dosage: 10 MG; 20 MG; ORAL
     Route: 048
     Dates: start: 20080519, end: 20081127

REACTIONS (7)
  - APLASTIC ANAEMIA [None]
  - BLOOD CREATININE INCREASED [None]
  - COAGULOPATHY [None]
  - EPISTAXIS [None]
  - HEPATIC FUNCTION ABNORMAL [None]
  - PANCYTOPENIA [None]
  - SEPSIS [None]
